FAERS Safety Report 12215188 (Version 1)
Quarter: 2016Q1

REPORT INFORMATION
  Report Type: Spontaneous
  Country: US (occurrence: US)
  Receive Date: 20160328
  Receipt Date: 20160328
  Transmission Date: 20160526
  Serious: Yes (Other)
  Sender: FDA-Public Use
  Company Number: US-TEVA-645849USA

PATIENT
  Sex: Female

DRUGS (1)
  1. TRI-LO SPRINTEC [Suspect]
     Active Substance: ETHINYL ESTRADIOL\NORGESTIMATE
     Route: 065

REACTIONS (10)
  - Irritability [Unknown]
  - Anger [Unknown]
  - Product substitution issue [Unknown]
  - Oedema peripheral [Unknown]
  - Erythema [Unknown]
  - Intentional self-injury [Unknown]
  - Crying [Unknown]
  - Rash pruritic [Recovering/Resolving]
  - Headache [Recovered/Resolved]
  - Rash [Recovering/Resolving]
